FAERS Safety Report 7953580-3 (Version None)
Quarter: 2011Q4

REPORT INFORMATION
  Report Type: 
  Country: None (occurrence: None)
  Receive Date: 20111202
  Receipt Date: 20111128
  Transmission Date: 20120403
  Serious: Yes (Hospitalization, Other)
  Sender: FDA-Public Use
  Company Number: US-PFIZER INC-2011290433

PATIENT
  Sex: Female
  Weight: 68.02 kg

DRUGS (3)
  1. PREDNISOLONE [Concomitant]
     Indication: LUNG DISORDER
     Dosage: UNK
  2. DIGOXIN [Concomitant]
     Indication: CARDIAC DISORDER
     Dosage: UNK
  3. XALATAN [Suspect]
     Indication: GLAUCOMA
     Dosage: 1 GTT, DAILY
     Dates: start: 20100101

REACTIONS (4)
  - THROMBOSIS [None]
  - WEIGHT DECREASED [None]
  - EYE PAIN [None]
  - GROWTH OF EYELASHES [None]
